FAERS Safety Report 21802404 (Version 1)
Quarter: 2022Q4

REPORT INFORMATION
  Report Type: Spontaneous
  Country: JP (occurrence: JP)
  Receive Date: 20221231
  Receipt Date: 20221231
  Transmission Date: 20230112
  Serious: Yes (Other)
  Sender: FDA-Public Use
  Company Number: JP-SAKK-01420912

PATIENT
  Sex: Female

DRUGS (2)
  1. DUPIXENT [Suspect]
     Active Substance: DUPILUMAB
     Indication: Asthma
     Dosage: UNK, QM
     Route: 058
  2. DUPIXENT [Suspect]
     Active Substance: DUPILUMAB
     Indication: Chronic rhinosinusitis with nasal polyps
     Dosage: UNK, BIM
     Route: 058

REACTIONS (4)
  - Chronic eosinophilic rhinosinusitis [Unknown]
  - Condition aggravated [Unknown]
  - Choking [Unknown]
  - Hyposmia [Unknown]

NARRATIVE: CASE EVENT DATE: 20221201
